FAERS Safety Report 22330237 (Version 1)
Quarter: 2023Q2

REPORT INFORMATION
  Report Type: Spontaneous
  Country: US (occurrence: None)
  Receive Date: 20230517
  Receipt Date: 20230517
  Transmission Date: 20230721
  Serious: No
  Sender: FDA-Public Use
  Company Number: US-ROCHE-3103436

PATIENT
  Age: 77 Year
  Sex: Female
  Weight: 81.72 kg

DRUGS (2)
  1. ACTEMRA [Suspect]
     Active Substance: TOCILIZUMAB
     Indication: Giant cell arteritis
     Dosage: 162MG/0.9ML ;ONGOING: YES
     Route: 058
     Dates: start: 20220523
  2. METHOTREXATE [Concomitant]
     Active Substance: METHOTREXATE
     Dosage: YES

REACTIONS (1)
  - Haemorrhage [Recovered/Resolved]

NARRATIVE: CASE EVENT DATE: 20220523
